FAERS Safety Report 8116767-5 (Version None)
Quarter: 2012Q1

REPORT INFORMATION
  Report Type: 
  Country: None (occurrence: None)
  Receive Date: 20120206
  Receipt Date: 20120127
  Transmission Date: 20120608
  Serious: Yes (Hospitalization, Other)
  Sender: FDA-Public Use
  Company Number: US-BAYER-2011-033492

PATIENT
  Age: 32 Year
  Sex: Female
  Weight: 105 kg

DRUGS (11)
  1. RANITIDINE [Concomitant]
     Dosage: 150 MG, UNK
     Route: 048
  2. MULTI-VITAMINS [Concomitant]
  3. EPIPEN [Concomitant]
     Indication: ANAPHYLACTOID REACTION
  4. PROVENTIL [Concomitant]
     Dosage: UNK UNK, PRN
  5. SINGULAIR [Concomitant]
     Dosage: 10 MG, QD
     Route: 048
  6. YAZ [Suspect]
     Dosage: UNK
     Dates: start: 20090401, end: 20090701
  7. EPIPEN [Concomitant]
     Indication: HYPERSENSITIVITY
     Dosage: UNK UNK, PRN
     Route: 030
  8. BENADRYL [Concomitant]
  9. FEXOFENADINE [Concomitant]
     Dosage: 180 MG, QD
  10. PANTOPRAZOLE [Concomitant]
     Dosage: 40 MG, QD
  11. METFORMIN HCL [Concomitant]
     Dosage: 500 MG, UNK
     Route: 048

REACTIONS (8)
  - VOMITING [None]
  - BILIARY DYSKINESIA [None]
  - DIARRHOEA [None]
  - GALLBLADDER DISORDER [None]
  - NAUSEA [None]
  - ABDOMINAL PAIN [None]
  - CHOLECYSTITIS CHRONIC [None]
  - PAIN [None]
